FAERS Safety Report 6302196-3 (Version None)
Quarter: 2009Q3

REPORT INFORMATION
  Report Type: 
  Country: None (occurrence: None)
  Receive Date: 20090810
  Receipt Date: 20090730
  Transmission Date: 20100115
  Serious: Yes (Other)
  Sender: FDA-Public Use
  Company Number: BE-BIOGENIDEC-2009BI023789

PATIENT
  Age: 29 Year
  Sex: Female

DRUGS (1)
  1. TYSABRI [Suspect]
     Indication: RELAPSING-REMITTING MULTIPLE SCLEROSIS
     Route: 042
     Dates: start: 20080912, end: 20090715

REACTIONS (3)
  - CEREBRAL DISORDER [None]
  - COGNITIVE DISORDER [None]
  - VISUAL IMPAIRMENT [None]
